FAERS Safety Report 23565707 (Version 2)
Quarter: 2024Q2

REPORT INFORMATION
  Report Type: Spontaneous
  Country: US (occurrence: US)
  Receive Date: 20240226
  Receipt Date: 20240409
  Transmission Date: 20240716
  Serious: No
  Sender: FDA-Public Use
  Company Number: US-PFIZER INC-202400049508

PATIENT
  Age: 59 Year
  Sex: Female
  Weight: 65.77 kg

DRUGS (3)
  1. VARENICLINE TARTRATE [Suspect]
     Active Substance: VARENICLINE TARTRATE
     Indication: Smoking cessation therapy
     Dosage: TOOK FOR 2 AND A HALF WEEKS, 2 DOSES; 1ST WEEK 0.5MG, 2ND, 3RD, 4TH WEEK, 1MG TABLETS
     Dates: start: 202307
  2. VARENICLINE TARTRATE [Suspect]
     Active Substance: VARENICLINE TARTRATE
     Dosage: 2 DOSES; 1ST WEEK 0.5MG, 2ND, 3RD, 4TH WEEK, 1MG TABLETS
     Dates: start: 202307
  3. VARENICLINE TARTRATE [Suspect]
     Active Substance: VARENICLINE TARTRATE
     Dosage: UNK

REACTIONS (4)
  - Rash [Not Recovered/Not Resolved]
  - Rash vesicular [Unknown]
  - Scar [Unknown]
  - Pruritus [Unknown]

NARRATIVE: CASE EVENT DATE: 20230701
